FAERS Safety Report 8167161-2 (Version None)
Quarter: 2012Q1

REPORT INFORMATION
  Report Type: 
  Country: None (occurrence: None)
  Receive Date: 20120227
  Receipt Date: 20120206
  Transmission Date: 20120608
  Serious: Yes (Hospitalization)
  Sender: FDA-Public Use
  Company Number: GB-JNJFOC-20120211921

PATIENT
  Age: 21 Month
  Sex: Male

DRUGS (3)
  1. ^ASTHMA INHALER^ [Concomitant]
     Indication: ASTHMA
  2. ACETAMINOPHEN [Suspect]
     Route: 065
  3. ACETAMINOPHEN [Suspect]
     Indication: HEADACHE
     Route: 065
     Dates: start: 20120203

REACTIONS (2)
  - LOWER RESPIRATORY TRACT INFECTION [None]
  - VIRAEMIA [None]
